FAERS Safety Report 4683810-5 (Version None)
Quarter: 2005Q2

REPORT INFORMATION
  Report Type: 
  Country: None (occurrence: None)
  Receive Date: 20050607
  Receipt Date: 20050527
  Transmission Date: 20051028
  Serious: Yes (Hospitalization)
  Sender: FDA-Public Use
  Company Number: DE-JNJFOC-20050507132

PATIENT
  Sex: Female
  Weight: 71 kg

DRUGS (1)
  1. GALANTAMINE ER [Suspect]
     Route: 049

REACTIONS (1)
  - CIRCULATORY COLLAPSE [None]
